FAERS Safety Report 5585912-8 (Version None)
Quarter: 2008Q1

REPORT INFORMATION
  Report Type: 
  Country: None (occurrence: None)
  Receive Date: 20080109
  Receipt Date: 20080103
  Transmission Date: 20080703
  Serious: Yes (Hospitalization)
  Sender: FDA-Public Use
  Company Number: US-BOEHRINGER INGELHEIM PHARMACEUTICALS, INC.-2007-BP-24042BP

PATIENT
  Sex: Female

DRUGS (12)
  1. SPIRIVA [Suspect]
     Indication: CHRONIC OBSTRUCTIVE PULMONARY DISEASE
     Route: 055
     Dates: start: 20060101
  2. SPIRIVA [Suspect]
     Indication: DRUG INEFFECTIVE
  3. ACTONEL [Concomitant]
     Indication: OSTEOPOROSIS PROPHYLAXIS
  4. ALTACE [Concomitant]
     Indication: CARDIAC DISORDER
  5. COUMADIN [Concomitant]
     Indication: ATRIAL FIBRILLATION
  6. LASIX [Concomitant]
     Indication: CARDIAC DISORDER
  7. ALBUTEROL [Concomitant]
     Indication: CHRONIC OBSTRUCTIVE PULMONARY DISEASE
  8. LYRICA [Concomitant]
     Indication: HERPES ZOSTER
  9. SYNTHROID [Concomitant]
     Indication: HYPOTHYROIDISM
  10. TOPROL-XL [Concomitant]
     Indication: HYPERTENSION
  11. ZETIA [Concomitant]
     Indication: BLOOD CHOLESTEROL INCREASED
  12. EYE DROPS [Concomitant]

REACTIONS (1)
  - DYSPNOEA [None]
